FAERS Safety Report 9636761 (Version 1)
Quarter: 2013Q4

REPORT INFORMATION
  Report Type: Other
  Country: DE (occurrence: DE)
  Receive Date: 20131022
  Receipt Date: 20131022
  Transmission Date: 20140711
  Serious: Yes (Congenital Anomaly)
  Sender: FDA-Public Use
  Company Number: DE-LUPIN PHARMACEUTICALS INC.-E2B_00001361

PATIENT
  Age: 1 Day
  Sex: Male
  Weight: 3.4 kg

DRUGS (4)
  1. LAMOTRIGIN [Suspect]
     Indication: EPILEPSY
     Route: 064
  2. ANTILEPSIN [Suspect]
     Indication: EPILEPSY
     Route: 064
  3. FOLIO [Concomitant]
     Indication: PROPHYLAXIS OF NEURAL TUBE DEFECT
     Route: 064
  4. PARACETAMOL [Concomitant]
     Indication: TOOTHACHE
     Route: 064

REACTIONS (4)
  - Cleft lip and palate [Unknown]
  - Atrial septal defect [Unknown]
  - Patent ductus arteriosus [Unknown]
  - Foetal exposure during pregnancy [Unknown]
